FAERS Safety Report 5581279-X (Version None)
Quarter: 2008Q1

REPORT INFORMATION
  Report Type: 
  Country: None (occurrence: None)
  Receive Date: 20080104
  Receipt Date: 20071221
  Transmission Date: 20080703
  Serious: No
  Sender: FDA-Public Use
  Company Number: US-ELI_LILLY_AND_COMPANY-US200712003423

PATIENT
  Sex: Female
  Weight: 50.793 kg

DRUGS (8)
  1. FORTEO [Suspect]
     Indication: OSTEOPOROSIS
     Dosage: 20 UG, DAILY (1/D)
     Dates: start: 20060101
  2. DARVOCET [Concomitant]
     Dosage: 100 UNK, UNK
  3. ZETIA [Concomitant]
     Dosage: 10 UNK, DAILY (1/D)
  4. XANAX [Concomitant]
     Dosage: 0.25 MG, 2/D
  5. SERTRALINE [Concomitant]
     Dosage: 75 MG, DAILY (1/D)
  6. SONATA [Concomitant]
     Dosage: 5 MG, DAILY (1/D)
  7. ERGOCALCIFEROL [Concomitant]
  8. CALCIUM CARBONATE [Concomitant]

REACTIONS (1)
  - SPINAL COMPRESSION FRACTURE [None]
